FAERS Safety Report 13345468 (Version 1)
Quarter: 2017Q1

REPORT INFORMATION
  Report Type: Spontaneous
  Country: US (occurrence: US)
  Receive Date: 20170316
  Receipt Date: 20170316
  Transmission Date: 20170428
  Serious: No
  Sender: FDA-Public Use
  Company Number: None

PATIENT
  Age: 86 Year
  Sex: Female

DRUGS (1)
  1. IMATINIB 100MG RANBAXY [Suspect]
     Active Substance: IMATINIB
     Indication: MYELOID LEUKAEMIA
     Route: 048
     Dates: start: 20160112

REACTIONS (4)
  - Product coating issue [None]
  - Product taste abnormal [None]
  - Product physical issue [None]
  - Product quality issue [None]

NARRATIVE: CASE EVENT DATE: 20170222
